FAERS Safety Report 16833528 (Version 3)
Quarter: 2019Q4

REPORT INFORMATION
  Report Type: Spontaneous
  Country: US (occurrence: US)
  Receive Date: 20190920
  Receipt Date: 20191122
  Transmission Date: 20200122
  Serious: Yes (Hospitalization, Other)
  Sender: FDA-Public Use
  Company Number: US-PARI RESPIRATORY EQUIPMENT, INC.-2019PAR00089

PATIENT
  Age: 12 Year
  Sex: Female
  Weight: 56.69 kg

DRUGS (7)
  1. KITABIS PAK [Suspect]
     Active Substance: TOBRAMYCIN
     Indication: CYSTIC FIBROSIS
     Dosage: UNK
  2. ALBUTEROL. [Concomitant]
     Active Substance: ALBUTEROL
  3. KITABIS PAK [Suspect]
     Active Substance: TOBRAMYCIN
     Dosage: 300 MG, 2X/DAY
     Dates: start: 2018
  4. UNSPECIFIED VITAMINS [Concomitant]
     Active Substance: VITAMINS
  5. KALYDECO [Concomitant]
     Active Substance: IVACAFTOR
  6. UNSPECIFIED SUPPLEMENTS [Concomitant]
  7. PULMOZYME [Concomitant]
     Active Substance: DORNASE ALFA

REACTIONS (7)
  - Throat irritation [Unknown]
  - Pulmonary function test decreased [Recovered/Resolved]
  - Atelectasis [Recovered/Resolved]
  - Respiratory arrest [Recovered/Resolved]
  - Pseudomonas infection [Recovered/Resolved]
  - Asthma [Unknown]
  - Sputum abnormal [Recovered/Resolved]

NARRATIVE: CASE EVENT DATE: 201908
